FAERS Safety Report 18179632 (Version 6)
Quarter: 2023Q2

REPORT INFORMATION
  Report Type: Spontaneous
  Country: US (occurrence: US)
  Receive Date: 20200820
  Receipt Date: 20230613
  Transmission Date: 20230722
  Serious: Yes (Other)
  Sender: FDA-Public Use
  Company Number: US-GILEAD-2020-0490187

PATIENT
  Age: 59 Year
  Sex: Male
  Weight: 136.05 kg

DRUGS (18)
  1. TRUVADA [Suspect]
     Active Substance: EMTRICITABINE\TENOFOVIR DISOPROXIL FUMARATE
     Indication: HIV infection
     Dosage: UNK
     Route: 048
     Dates: start: 2013
  2. STRIBILD [Suspect]
     Active Substance: COBICISTAT\ELVITEGRAVIR\EMTRICITABINE\TENOFOVIR DISOPROXIL FUMARATE
     Indication: HIV infection
     Dosage: UNK
     Route: 048
     Dates: start: 2013, end: 2014
  3. BIKTARVY [Concomitant]
     Active Substance: BICTEGRAVIR SODIUM\EMTRICITABINE\TENOFOVIR ALAFENAMIDE FUMARATE
     Indication: HIV infection
     Dosage: UNK
     Dates: start: 2016
  4. TIVICAY [Concomitant]
     Active Substance: DOLUTEGRAVIR SODIUM
     Indication: HIV infection
     Dosage: UNK
     Dates: start: 2016
  5. TRULICITY [Concomitant]
     Active Substance: DULAGLUTIDE
     Indication: Diabetes mellitus
     Dosage: UNK
     Dates: start: 2016
  6. KEPPRA [Concomitant]
     Active Substance: LEVETIRACETAM
     Indication: Epilepsy
     Dosage: UNK
     Dates: start: 2014
  7. LIDAMIDINE [Concomitant]
     Indication: Gastric disorder
     Dosage: UNK
     Dates: start: 2016
  8. ELIQUIS [Concomitant]
     Active Substance: APIXABAN
     Indication: Thrombosis
     Dosage: UNK
     Dates: start: 2019
  9. DAILY-VITE [Concomitant]
     Indication: Vitamin supplementation
     Dosage: UNK
     Dates: start: 2016
  10. PAROXETINE [Concomitant]
     Active Substance: PAROXETINE
     Indication: Antidepressant therapy
     Dosage: UNK
     Dates: start: 2013
  11. GLIMEPIRIDE [Concomitant]
     Active Substance: GLIMEPIRIDE
     Indication: Diabetes mellitus
     Dosage: UNK
     Dates: start: 2013
  12. TRIAMTERENE [Concomitant]
     Active Substance: TRIAMTERENE
  13. METOPROLOL [Concomitant]
     Active Substance: METOPROLOL
  14. EPIVIR [Concomitant]
     Active Substance: LAMIVUDINE
  15. NORVIR [Concomitant]
     Active Substance: RITONAVIR
  16. PREZISTA [Concomitant]
     Active Substance: DARUNAVIR ETHANOLATE
  17. ZIAGEN [Concomitant]
     Active Substance: ABACAVIR SULFATE
  18. ABACAVIR [Concomitant]
     Active Substance: ABACAVIR

REACTIONS (7)
  - Chronic kidney disease [Not Recovered/Not Resolved]
  - Pain [Not Recovered/Not Resolved]
  - Anhedonia [Not Recovered/Not Resolved]
  - Abdominal discomfort [Unknown]
  - Emotional distress [Not Recovered/Not Resolved]
  - Anxiety [Not Recovered/Not Resolved]
  - Malaise [Unknown]

NARRATIVE: CASE EVENT DATE: 20140101
